FAERS Safety Report 10393128 (Version 1)
Quarter: 2014Q3

REPORT INFORMATION
  Report Type: Spontaneous
  Country: US (occurrence: None)
  Receive Date: 20140819
  Receipt Date: 20140819
  Transmission Date: 20150326
  Serious: No
  Sender: FDA-Public Use
  Company Number: None

PATIENT
  Age: 81 Year
  Sex: Male

DRUGS (2)
  1. KETA/BUPI/CYCLO/KETO/GABA/FLUT [Suspect]
     Active Substance: BUPIVACAINE\CYCLOBENZAPRINE\FLUTICASONE\GABAPENTIN\KETAMINE\KETOPROFEN
     Indication: PAIN IN EXTREMITY
     Dosage: 1-3 GRAMS THREE TIMES DAILY APPLIED TO A SURFACE, USUALLY THE SKIN
     Route: 061
  2. KETA/BUPI/CYCLO/KETO/GABA/FLUT [Suspect]
     Active Substance: BUPIVACAINE\CYCLOBENZAPRINE\FLUTICASONE\GABAPENTIN\KETAMINE\KETOPROFEN
     Indication: MUSCULOSKELETAL PAIN
     Dosage: 1-3 GRAMS THREE TIMES DAILY APPLIED TO A SURFACE, USUALLY THE SKIN
     Route: 061

REACTIONS (1)
  - Drug ineffective [None]

NARRATIVE: CASE EVENT DATE: 20140416
